FAERS Safety Report 12707220 (Version 9)
Quarter: 2019Q3

REPORT INFORMATION
  Report Type: Spontaneous
  Country: ZA (occurrence: ZA)
  Receive Date: 20160901
  Receipt Date: 20190923
  Transmission Date: 20191004
  Serious: Yes (Hospitalization)
  Sender: FDA-Public Use
  Company Number: PHHY2013ZA045715

PATIENT
  Age: 57 Year
  Sex: Female
  Weight: 55 kg

DRUGS (15)
  1. ANDOLEX [Concomitant]
     Indication: PRODUCT USED FOR UNKNOWN INDICATION
     Route: 065
  2. IPRATROPIUM [Concomitant]
     Active Substance: IPRATROPIUM
     Indication: INFLUENZA
     Dosage: UNK UNK, Q8H
     Route: 065
  3. AVAMYS [Concomitant]
     Active Substance: FLUTICASONE FUROATE
     Indication: RHINITIS ALLERGIC
     Dosage: UNK
     Route: 065
  4. ILIADIN [Concomitant]
     Indication: RHINITIS ALLERGIC
     Dosage: UNK
     Route: 065
  5. COMBIVENT [Concomitant]
     Active Substance: ALBUTEROL SULFATE\IPRATROPIUM BROMIDE
     Indication: PRODUCT USED FOR UNKNOWN INDICATION
     Dosage: UNK
     Route: 065
  6. URIZONE [Concomitant]
     Active Substance: FOSFOMYCIN TROMETHAMINE
     Indication: URINARY TRACT INFECTION
     Dosage: UNK
     Route: 065
  7. SPERSADEX [Concomitant]
     Indication: PRODUCT USED FOR UNKNOWN INDICATION
     Route: 065
  8. VATIVIO [Suspect]
     Active Substance: IMATINIB MESYLATE
     Indication: CHRONIC MYELOID LEUKAEMIA
     Dosage: 400 MG, QD
     Route: 065
     Dates: start: 201310
  9. TOPZOLE [Concomitant]
     Active Substance: PANTOPRAZOLE SODIUM
     Indication: PRODUCT USED FOR UNKNOWN INDICATION
     Dosage: UNK
     Route: 065
  10. CLINDAMYCIN. [Concomitant]
     Active Substance: CLINDAMYCIN
     Indication: PRODUCT USED FOR UNKNOWN INDICATION
     Dosage: UNK
     Route: 065
  11. GLEEVEC [Suspect]
     Active Substance: IMATINIB MESYLATE
     Dosage: 100 MG, UNK
     Route: 065
     Dates: start: 20130414, end: 20130514
  12. DAKTACORT [Concomitant]
     Active Substance: HYDROCORTISONE\MICONAZOLE NITRATE
     Indication: PRODUCT USED FOR UNKNOWN INDICATION
     Dosage: UNK
     Route: 065
  13. SALEX [Concomitant]
     Active Substance: SALICYLIC ACID
     Indication: PRODUCT USED FOR UNKNOWN INDICATION
     Dosage: UNK
     Route: 065
  14. GLEEVEC [Suspect]
     Active Substance: IMATINIB MESYLATE
     Indication: CHRONIC MYELOID LEUKAEMIA
     Dosage: 400 MG, UNK
     Route: 065
     Dates: start: 20130330, end: 20130413
  15. GLEEVEC [Suspect]
     Active Substance: IMATINIB MESYLATE
     Dosage: 200 MG, QD
     Route: 065
     Dates: start: 20130515, end: 201308

REACTIONS (38)
  - Hormone level abnormal [Unknown]
  - Sinusitis [Unknown]
  - Malaise [Unknown]
  - Cough [Unknown]
  - Oropharyngeal pain [Unknown]
  - Dizziness [Recovered/Resolved]
  - Influenza [Recovering/Resolving]
  - Ear pain [Unknown]
  - Sinus congestion [Unknown]
  - Eye infection [Not Recovered/Not Resolved]
  - Nasopharyngitis [Not Recovered/Not Resolved]
  - Swelling of eyelid [Recovering/Resolving]
  - Headache [Recovered/Resolved]
  - Excessive cerumen production [Unknown]
  - Nerve compression [Unknown]
  - Dry eye [Unknown]
  - Bone pain [Not Recovered/Not Resolved]
  - Weight decreased [Unknown]
  - Depression [Unknown]
  - Fatigue [Unknown]
  - Palpitations [Unknown]
  - Chest pain [Not Recovered/Not Resolved]
  - Balance disorder [Unknown]
  - Irritable bowel syndrome [Unknown]
  - Gastrooesophageal reflux disease [Unknown]
  - Lung disorder [Unknown]
  - Feeling abnormal [Unknown]
  - Hair texture abnormal [Unknown]
  - Anxiety [Unknown]
  - Nausea [Unknown]
  - Myalgia [Unknown]
  - Diarrhoea [Unknown]
  - Cardiac disorder [Unknown]
  - Dry skin [Unknown]
  - Back pain [Not Recovered/Not Resolved]
  - Erythema [Unknown]
  - Urinary tract infection [Unknown]
  - Cytogenetic analysis abnormal [Unknown]

NARRATIVE: CASE EVENT DATE: 2013
